FAERS Safety Report 24462238 (Version 1)
Quarter: 2024Q4

REPORT INFORMATION
  Report Type: Spontaneous
  Country: US (occurrence: None)
  Receive Date: 20241018
  Receipt Date: 20241018
  Transmission Date: 20250115
  Serious: Yes (Other)
  Sender: Public
  Company Number: None

PATIENT
  Age: 71 Year
  Sex: Female
  Weight: 65.25 kg

DRUGS (2)
  1. CETIRIZINE [Suspect]
     Active Substance: CETIRIZINE HYDROCHLORIDE
     Indication: Lichen planopilaris
     Dosage: OTHER QUANTITY : 1 TABLET(S);?FREQUENCY : DAILY;?
     Route: 048
  2. NALTREXONE [Concomitant]
     Active Substance: NALTREXONE

REACTIONS (5)
  - Product availability issue [None]
  - Therapy interrupted [None]
  - Pruritus [None]
  - Product use complaint [None]
  - Withdrawal syndrome [None]
